FAERS Safety Report 21156203 (Version 2)
Quarter: 2022Q3

REPORT INFORMATION
  Report Type: Spontaneous
  Country: US (occurrence: US)
  Receive Date: 20220801
  Receipt Date: 20220901
  Transmission Date: 20221027
  Serious: No
  Sender: FDA-Public Use
  Company Number: US-PHARMING-PHAUS2022000497

PATIENT

DRUGS (1)
  1. RUCONEST [Suspect]
     Active Substance: HUMAN C1-ESTERASE INHIBITOR
     Indication: Hereditary angioedema
     Dosage: 4200 IU, AS NEEDED
     Route: 042
     Dates: start: 20210930

REACTIONS (2)
  - Pharyngeal swelling [Unknown]
  - Injection site bruising [Recovered/Resolved]

NARRATIVE: CASE EVENT DATE: 20220701
